FAERS Safety Report 20383588 (Version 1)
Quarter: 2022Q1

REPORT INFORMATION
  Report Type: Spontaneous
  Country: US (occurrence: US)
  Receive Date: 20220127
  Receipt Date: 20220127
  Transmission Date: 20220423
  Serious: Yes (Other)
  Sender: FDA-Public Use
  Company Number: US-GLAXOSMITHKLINE-US2022GSK013801

PATIENT
  Sex: Female

DRUGS (7)
  1. ZANTAC [Suspect]
     Active Substance: RANITIDINE HYDROCHLORIDE
     Indication: Dyspepsia
     Dosage: UNKNOWN AT THIS TIME, ONCE
     Route: 065
     Dates: start: 200701, end: 202001
  2. ZANTAC [Suspect]
     Active Substance: RANITIDINE HYDROCHLORIDE
     Indication: Dyspepsia
     Dosage: UNKNOWN AT THIS TIME, ONCE
     Route: 065
     Dates: start: 200701, end: 202001
  3. RANITIDINE [Suspect]
     Active Substance: RANITIDINE
     Indication: Dyspepsia
     Dosage: UNKNOWN AT THIS TIME, ONCE
     Route: 065
     Dates: start: 200701, end: 202001
  4. RANITIDINE [Suspect]
     Active Substance: RANITIDINE
     Indication: Dyspepsia
     Dosage: UNKNOWN AT THIS TIME, ONCE
     Route: 065
     Dates: start: 200701, end: 202001
  5. ZANTAC [Suspect]
     Active Substance: RANITIDINE HYDROCHLORIDE
     Indication: Dyspepsia
     Dosage: UNKNOWN AT THIS TIME, ONCE
     Route: 065
     Dates: start: 200701, end: 202001
  6. RANITIDINE [Suspect]
     Active Substance: RANITIDINE
     Indication: Dyspepsia
     Dosage: UNKNOWN AT THIS TIME, ONCE
     Route: 065
     Dates: start: 200701, end: 202001
  7. RANITIDINE [Suspect]
     Active Substance: RANITIDINE
     Indication: Dyspepsia
     Dosage: UNKNOWN AT THIS TIME, ONCE
     Route: 065
     Dates: start: 200701, end: 202001

REACTIONS (1)
  - Breast cancer [Unknown]
